FAERS Safety Report 4883494-7 (Version None)
Quarter: 2006Q1

REPORT INFORMATION
  Report Type: 
  Country: None (occurrence: None)
  Receive Date: 20060118
  Receipt Date: 20060106
  Transmission Date: 20060701
  Serious: Yes (Other)
  Sender: FDA-Public Use
  Company Number: ES-MERCK-0601ESP00013M

PATIENT
  Age: 42 Year
  Sex: Female

DRUGS (18)
  1. CRIXIVAN [Suspect]
     Indication: HIV INFECTION
     Route: 065
  2. ZIDOVUDINE [Suspect]
     Indication: HIV INFECTION
     Route: 065
  3. ZIDOVUDINE [Suspect]
     Route: 065
  4. ZIDOVUDINE [Suspect]
     Route: 065
  5. ZIDOVUDINE [Suspect]
     Route: 065
  6. ZALCITABINE [Suspect]
     Indication: HIV INFECTION
     Route: 065
  7. SAQUINAVIR [Suspect]
     Indication: HIV INFECTION
     Route: 065
  8. STAVUDINE [Suspect]
     Indication: HIV INFECTION
     Route: 065
  9. STAVUDINE [Suspect]
     Route: 065
  10. LAMIVUDINE [Suspect]
     Indication: HIV INFECTION
     Route: 065
  11. LAMIVUDINE [Suspect]
     Route: 065
  12. LAMIVUDINE [Suspect]
     Route: 065
  13. LAMIVUDINE [Suspect]
     Route: 065
  14. LAMIVUDINE [Suspect]
     Route: 065
  15. ABACAVIR SULFATE [Suspect]
     Indication: HIV INFECTION
     Route: 065
  16. ABACAVIR SULFATE [Suspect]
     Route: 065
  17. ABACAVIR SULFATE [Suspect]
     Route: 065
  18. NEVIRAPINE [Suspect]
     Indication: HIV INFECTION
     Route: 065

REACTIONS (2)
  - DRUG EXPOSURE DURING PREGNANCY [None]
  - PRE-ECLAMPSIA [None]
